FAERS Safety Report 11744141 (Version 1)
Quarter: 2015Q4

REPORT INFORMATION
  Report Type: Spontaneous
  Country: CA (occurrence: CA)
  Receive Date: 20151116
  Receipt Date: 20151116
  Transmission Date: 20160304
  Serious: Yes (Life-Threatening, Other)
  Sender: FDA-Public Use
  Company Number: CA-ALEXION-A201504505

PATIENT
  Sex: Male
  Weight: 15.4 kg

DRUGS (1)
  1. STRENSIQ [Suspect]
     Active Substance: ASFOTASE ALFA
     Indication: HYPOPHOSPHATASIA
     Dosage: 31 MG, 3 TIMES PER WEEK
     Route: 058

REACTIONS (12)
  - Autism [Unknown]
  - Ear deformity acquired [None]
  - Cardiac arrest [Unknown]
  - Anomaly of middle ear congenital [Unknown]
  - Hypoxic-ischaemic encephalopathy [Unknown]
  - Tooth loss [Unknown]
  - Speech disorder developmental [Unknown]
  - Seizure [Unknown]
  - Tooth discolouration [Unknown]
  - Deformity [Unknown]
  - Hand fracture [Unknown]
  - Injection site bruising [Unknown]
